FAERS Safety Report 4435435-4 (Version None)
Quarter: 2004Q3

REPORT INFORMATION
  Report Type: 
  Country: None (occurrence: None)
  Receive Date: 20040826
  Receipt Date: 20040813
  Transmission Date: 20050211
  Serious: Yes (Other)
  Sender: FDA-Public Use
  Company Number: 2004056269

PATIENT
  Age: 43 Year
  Sex: Female
  Weight: 59 kg

DRUGS (2)
  1. RELPAX [Suspect]
     Indication: MIGRAINE
     Dosage: 20 MG (20 MG), ORAL
     Route: 048
     Dates: start: 20040622, end: 20040622
  2. LOXOPROFEN SODIUM (LOXOPROFEN SODIUM) [Concomitant]

REACTIONS (8)
  - ARTHRALGIA [None]
  - CHEST PAIN [None]
  - COLD SWEAT [None]
  - DYSPNOEA [None]
  - NECK PAIN [None]
  - PALLOR [None]
  - QUADRIPLEGIA [None]
  - TINNITUS [None]
